FAERS Safety Report 6424217-X (Version None)
Quarter: 2009Q4

REPORT INFORMATION
  Report Type: 
  Country: None (occurrence: None)
  Receive Date: 20091102
  Receipt Date: 20091022
  Transmission Date: 20100525
  Serious: Yes (Other)
  Sender: FDA-Public Use
  Company Number: SE-AMGEN-UK370700

PATIENT
  Sex: Female
  Weight: 80 kg

DRUGS (8)
  1. VECTIBIX [Suspect]
     Indication: PRE-EXISTING DISEASE
     Route: 042
     Dates: start: 20090924
  2. XELODA [Concomitant]
     Route: 048
     Dates: start: 20090924
  3. VOLTAREN [Concomitant]
     Route: 065
  4. OXYCONTIN [Concomitant]
     Route: 065
     Dates: start: 20091022
  5. ACETAMINOPHEN [Concomitant]
     Route: 065
  6. ACETYLCYSTEINE [Concomitant]
     Route: 065
     Dates: start: 20090301
  7. PROPAVAN [Concomitant]
     Route: 065
     Dates: start: 20091020
  8. UNSPECIFIED MEDICATION [Concomitant]
     Route: 065
     Dates: start: 20081101

REACTIONS (8)
  - ABDOMINAL DISTENSION [None]
  - ASCITES [None]
  - BREATH SOUNDS ABNORMAL [None]
  - CYANOSIS [None]
  - DYSPNOEA [None]
  - HYPERSENSITIVITY [None]
  - METASTASIS [None]
  - OEDEMA PERIPHERAL [None]
